FAERS Safety Report 25547287 (Version 3)
Quarter: 2025Q3

REPORT INFORMATION
  Report Type: Spontaneous
  Country: US (occurrence: US)
  Receive Date: 20250714
  Receipt Date: 20250901
  Transmission Date: 20251021
  Serious: Yes (Other)
  Sender: MSN LABORATORIES PRIVATE LIMITED
  Company Number: US-MSNLABS-2025MSNSPO01680

PATIENT

DRUGS (3)
  1. LEVETIRACETAM [Suspect]
     Active Substance: LEVETIRACETAM
     Indication: Focal dyscognitive seizures
     Dosage: 250 MG TWICE DAILY MORNING AND NIGHT
     Route: 048
     Dates: start: 20250628, end: 20250702
  2. LEVETIRACETAM [Suspect]
     Active Substance: LEVETIRACETAM
  3. LACOSAMIDE [Suspect]
     Active Substance: LACOSAMIDE
     Indication: Focal dyscognitive seizures
     Dosage: 250 MG TWICE DAILY MORNING AND NIGHT
     Route: 065

REACTIONS (14)
  - Urinary tract infection staphylococcal [Unknown]
  - Impaired driving ability [Recovered/Resolved]
  - Abdominal discomfort [Not Recovered/Not Resolved]
  - Eructation [Recovered/Resolved]
  - Loss of personal independence in daily activities [Recovered/Resolved]
  - Product substitution issue [Unknown]
  - Drug level increased [Unknown]
  - Nausea [Not Recovered/Not Resolved]
  - Dizziness [Not Recovered/Not Resolved]
  - Diarrhoea [Recovered/Resolved]
  - Fatigue [Recovered/Resolved]
  - Headache [Recovered/Resolved]
  - Vertigo [Not Recovered/Not Resolved]
  - Vomiting [Not Recovered/Not Resolved]
